FAERS Safety Report 9897118 (Version 1)
Quarter: 2014Q1

REPORT INFORMATION
  Report Type: Spontaneous
  Country: US (occurrence: US)
  Receive Date: 20140214
  Receipt Date: 20140214
  Transmission Date: 20141002
  Serious: No
  Sender: FDA-Public Use
  Company Number: US-009507513-1402USA003804

PATIENT
  Age: 90 Year
  Sex: Female

DRUGS (1)
  1. JANUVIA [Suspect]
     Indication: DIABETES MELLITUS
     Dosage: 100 MG, QD
     Route: 048
     Dates: start: 2012

REACTIONS (6)
  - Decreased appetite [Recovering/Resolving]
  - Dysphagia [Recovering/Resolving]
  - Wrong technique in drug usage process [Recovering/Resolving]
  - Drug dose omission [Unknown]
  - Blood glucose increased [Recovering/Resolving]
  - Dysphagia [Recovering/Resolving]
